FAERS Safety Report 8616882-3 (Version None)
Quarter: 2012Q3

REPORT INFORMATION
  Report Type: 
  Country: None (occurrence: None)
  Receive Date: 20120823
  Receipt Date: 20120810
  Transmission Date: 20120928
  Serious: No
  Sender: FDA-Public Use
  Company Number: US-009507513-1208USA005629

PATIENT

DRUGS (2)
  1. FOSAMAX [Suspect]
     Indication: OSTEOPENIA
     Dosage: UNK, QW
     Dates: start: 20090810, end: 20110210
  2. ALENDRONATE SODIUM [Suspect]
     Dosage: UNK
     Dates: start: 20110210

REACTIONS (1)
  - BONE DENSITY DECREASED [None]
